FAERS Safety Report 11365608 (Version 2)
Quarter: 2015Q4

REPORT INFORMATION
  Report Type: Spontaneous
  Country: CN (occurrence: CN)
  Receive Date: 20150811
  Receipt Date: 20151026
  Transmission Date: 20160304
  Serious: Yes (Death)
  Sender: FDA-Public Use
  Company Number: CN-BAXTER-2015BAX042814

PATIENT
  Age: 14 Year
  Sex: Male
  Weight: 61 kg

DRUGS (6)
  1. FENTANYL CITRATE. [Suspect]
     Active Substance: FENTANYL CITRATE
     Indication: ANAESTHESIA PROCEDURE
     Route: 042
     Dates: start: 20150727, end: 20150727
  2. PROPOFOL. [Suspect]
     Active Substance: PROPOFOL
     Indication: ANAESTHESIA PROCEDURE
     Route: 065
     Dates: start: 20150727, end: 20150727
  3. ATROPINE SULPHATE [Suspect]
     Active Substance: ATROPINE SULFATE
     Indication: ANAESTHESIA PROCEDURE
     Route: 042
     Dates: start: 20150727, end: 20150727
  4. VECURONIUM BROMIDE. [Suspect]
     Active Substance: VECURONIUM BROMIDE
     Indication: ANAESTHESIA PROCEDURE
     Route: 042
     Dates: start: 20150727, end: 20150727
  5. AERRANE 100ML [Suspect]
     Active Substance: ISOFLURANE
     Indication: ANAESTHESIA PROCEDURE
     Route: 055
     Dates: start: 20150727, end: 20150727
  6. MIDAZOLAM [Suspect]
     Active Substance: MIDAZOLAM\MIDAZOLAM HYDROCHLORIDE
     Indication: ANAESTHESIA PROCEDURE
     Route: 042
     Dates: start: 20150727, end: 20150727

REACTIONS (1)
  - Hyperthermia malignant [Fatal]

NARRATIVE: CASE EVENT DATE: 20150727
